FAERS Safety Report 5797351-5 (Version None)
Quarter: 2008Q2

REPORT INFORMATION
  Report Type: 
  Country: None (occurrence: None)
  Receive Date: 20080630
  Receipt Date: 20080620
  Transmission Date: 20081010
  Serious: Yes (Other)
  Sender: FDA-Public Use
  Company Number: 2008016421

PATIENT
  Age: 8 Year
  Sex: Male
  Weight: 30.8 kg

DRUGS (2)
  1. CHILDREN'S ZYRTEC ALLERGY CHEWABLES (CETIRIZINE HYDROCHLORIDE) [Suspect]
     Indication: HYPERSENSITIVITY
     Dosage: 1 TABLET ONCE DAILY (10 MG, 1 IN 1 D), ORAL
     Route: 048
     Dates: start: 20080614, end: 20080617
  2. BENADRYL [Suspect]
     Dosage: ORAL
     Route: 048
     Dates: start: 20080616

REACTIONS (3)
  - DIZZINESS [None]
  - HALLUCINATION [None]
  - VOMITING [None]
